FAERS Safety Report 7301878-4 (Version None)
Quarter: 2011Q1

REPORT INFORMATION
  Report Type: 
  Country: None (occurrence: None)
  Receive Date: 20110218
  Receipt Date: 20110214
  Transmission Date: 20110831
  Serious: Yes (Hospitalization)
  Sender: FDA-Public Use
  Company Number: ES-ABBOTT-11P-144-0705283-00

PATIENT
  Sex: Female

DRUGS (4)
  1. WARFARIN SODIUM [Suspect]
     Indication: THROMBOSIS PROPHYLAXIS
     Route: 048
     Dates: start: 20091229, end: 20101130
  2. PLACEBO [Suspect]
     Indication: THROMBOSIS PROPHYLAXIS
     Route: 048
     Dates: start: 20091229, end: 20101130
  3. APIXABAN [Suspect]
     Indication: THROMBOSIS PROPHYLAXIS
     Route: 048
     Dates: start: 20091229, end: 20101109
  4. DICUMAROL [Suspect]
     Indication: PRODUCT USED FOR UNKNOWN INDICATION

REACTIONS (3)
  - MICROCYTIC ANAEMIA [None]
  - CARDIAC FAILURE [None]
  - OVERDOSE [None]
